FAERS Safety Report 10155016 (Version 1)
Quarter: 2014Q2

REPORT INFORMATION
  Report Type: Spontaneous
  Country: US (occurrence: US)
  Receive Date: 20140506
  Receipt Date: 20140506
  Transmission Date: 20141212
  Serious: Yes (Other)
  Sender: FDA-Public Use
  Company Number: US-BAYER-2014-062844

PATIENT
  Age: 63 Year
  Sex: Female

DRUGS (6)
  1. ALEVE CAPLET [Suspect]
  2. IBUPROFEN [Suspect]
  3. METFORMIN [Suspect]
     Indication: DIABETES MELLITUS
     Dosage: UNK
  4. NAPROXEN [Suspect]
  5. CORTISONE [Suspect]
     Indication: CARPAL TUNNEL SYNDROME
     Dosage: UNK
     Dates: start: 1999, end: 2012
  6. CELEBREX [Suspect]

REACTIONS (7)
  - Colitis ulcerative [Not Recovered/Not Resolved]
  - Diabetes mellitus [Not Recovered/Not Resolved]
  - Polyp [Recovered/Resolved]
  - Irritable bowel syndrome [Not Recovered/Not Resolved]
  - Spinal column stenosis [Not Recovered/Not Resolved]
  - Spinal disorder [Not Recovered/Not Resolved]
  - Headache [Not Recovered/Not Resolved]
